FAERS Safety Report 8391037-9 (Version None)
Quarter: 2012Q2

REPORT INFORMATION
  Report Type: 
  Country: None (occurrence: None)
  Receive Date: 20120515
  Receipt Date: 20120504
  Transmission Date: 20120825
  Serious: Yes (Hospitalization)
  Sender: FDA-Public Use
  Company Number: 2012SP024322

PATIENT
  Age: 64 Year
  Sex: Male

DRUGS (3)
  1. VELCADE [Suspect]
     Indication: MULTIPLE MYELOMA
     Dosage: 3.4 MG;IV
     Route: 042
     Dates: start: 20110103, end: 20120322
  2. CYCLOPHOSPHAMIDE [Suspect]
     Indication: MULTIPLE MYELOMA
     Dosage: 100 MG;PO
     Route: 048
     Dates: start: 20120301, end: 20120322
  3. DEXAMETHASONE [Suspect]
     Indication: MULTIPLE MYELOMA
     Dosage: 8 MG;PO
     Route: 048
     Dates: start: 20110301, end: 20120322

REACTIONS (1)
  - LOBAR PNEUMONIA [None]
